FAERS Safety Report 20567160 (Version 3)
Quarter: 2023Q2

REPORT INFORMATION
  Report Type: Spontaneous
  Country: US (occurrence: US)
  Receive Date: 20220308
  Receipt Date: 20230425
  Transmission Date: 20230721
  Serious: Yes (Other)
  Sender: FDA-Public Use
  Company Number: US-PFIZER INC-202200309945

PATIENT
  Age: 37 Year
  Sex: Female

DRUGS (2)
  1. XELJANZ [Suspect]
     Active Substance: TOFACITINIB CITRATE
     Indication: Rheumatoid arthritis
     Dosage: 5 MG, 2X/DAY
     Route: 048
     Dates: start: 201807
  2. XELJANZ [Suspect]
     Active Substance: TOFACITINIB CITRATE
     Dosage: 5 MG, 1X/DAY

REACTIONS (11)
  - Arthralgia [Unknown]
  - Rotator cuff syndrome [Unknown]
  - Muscle rupture [Unknown]
  - Intentional product use issue [Unknown]
  - Product dose omission issue [Unknown]
  - Blood cholesterol increased [Unknown]
  - Back pain [Unknown]
  - Spinal pain [Unknown]
  - Inflammation [Unknown]
  - Osteoarthritis [Unknown]
  - Arthropathy [Unknown]

NARRATIVE: CASE EVENT DATE: 20180101
